FAERS Safety Report 10609925 (Version 2)
Quarter: 2014Q4

REPORT INFORMATION
  Report Type: Spontaneous
  Country: US (occurrence: US)
  Receive Date: 20141126
  Receipt Date: 20141126
  Transmission Date: 20150529
  Serious: Yes (Hospitalization)
  Sender: FDA-Public Use
  Company Number: US-JNJFOC-20140904946

PATIENT
  Age: 71 Year
  Sex: Female
  Weight: 78 kg

DRUGS (9)
  1. PREDNISONE. [Concomitant]
     Active Substance: PREDNISONE
     Route: 048
  2. IMBRUVICA [Suspect]
     Active Substance: IBRUTINIB
     Indication: CHRONIC LYMPHOCYTIC LEUKAEMIA
     Dosage: AS TOLERATED
     Route: 048
     Dates: start: 201411
  3. FOLIC ACID. [Concomitant]
     Active Substance: FOLIC ACID
  4. IMBRUVICA [Suspect]
     Active Substance: IBRUTINIB
     Indication: CHRONIC LYMPHOCYTIC LEUKAEMIA
     Route: 048
     Dates: start: 201405, end: 201408
  5. IVIGLOB EX [Concomitant]
     Active Substance: HUMAN IMMUNOGLOBULIN G
     Route: 042
  6. NEXIUM [Concomitant]
     Active Substance: ESOMEPRAZOLE MAGNESIUM
  7. IMBRUVICA [Suspect]
     Active Substance: IBRUTINIB
     Indication: CHRONIC LYMPHOCYTIC LEUKAEMIA
     Route: 048
     Dates: start: 20140905, end: 201411
  8. IMBRUVICA [Suspect]
     Active Substance: IBRUTINIB
     Indication: CHRONIC LYMPHOCYTIC LEUKAEMIA
     Route: 048
     Dates: start: 20140407, end: 201405
  9. AMLODIPINE [Concomitant]
     Active Substance: AMLODIPINE BESYLATE
     Route: 048

REACTIONS (16)
  - Vomiting [Recovered/Resolved]
  - Pyrexia [Recovered/Resolved]
  - Sinus tachycardia [Recovering/Resolving]
  - Anxiety [Unknown]
  - Pain in extremity [Unknown]
  - Somnolence [Unknown]
  - Fatigue [Recovering/Resolving]
  - Supraventricular extrasystoles [Unknown]
  - Malaise [Unknown]
  - Sinus congestion [Unknown]
  - Orthopnoea [Unknown]
  - Insomnia [Unknown]
  - Nausea [Recovering/Resolving]
  - Fluid retention [Unknown]
  - Dyspnoea exertional [Unknown]
  - Asthenia [Unknown]

NARRATIVE: CASE EVENT DATE: 2014
